FAERS Safety Report 15899743 (Version 5)
Quarter: 2019Q1

REPORT INFORMATION
  Report Type: Spontaneous
  Country: US (occurrence: US)
  Receive Date: 20190201
  Receipt Date: 20190227
  Transmission Date: 20190417
  Serious: No
  Sender: FDA-Public Use
  Company Number: US-PFIZER INC-2018385526

PATIENT
  Age: 54 Year
  Sex: Male
  Weight: 57 kg

DRUGS (4)
  1. NICOTROL [Suspect]
     Active Substance: NICOTINE
     Indication: CHRONIC OBSTRUCTIVE PULMONARY DISEASE
     Dosage: 2 DF, UNK (1 SPRAY IN EACH NOSTRIL 1-5X/HR X8 WEEK)(MAX 80 SPRAYS/DAY)
     Route: 045
     Dates: start: 20181219
  2. NICOTROL [Suspect]
     Active Substance: NICOTINE
     Indication: SMOKING CESSATION THERAPY
     Dosage: 10MG, NOT EVER EXCEED 85 OF THE DOSE PER DAY. 2-3 TIMES EVERY 2 HOURS
     Route: 045
     Dates: start: 2018, end: 201812
  3. NICOTROL [Suspect]
     Active Substance: NICOTINE
     Indication: BRONCHITIS
     Dosage: UNK (TAPER DOSE OVER 4-6WK)
     Route: 045
  4. NICOTROL [Suspect]
     Active Substance: NICOTINE
     Indication: SMOKING CESSATION THERAPY
     Dosage: UNK, (3-4 TIMES AN HOUR)

REACTIONS (5)
  - Anxiety [Unknown]
  - Malaise [Not Recovered/Not Resolved]
  - Nail operation [Not Recovered/Not Resolved]
  - Panic attack [Unknown]
  - Emphysema [Not Recovered/Not Resolved]

NARRATIVE: CASE EVENT DATE: 201801
